FAERS Safety Report 5924866-9 (Version None)
Quarter: 2008Q4

REPORT INFORMATION
  Report Type: 
  Country: None (occurrence: None)
  Receive Date: 20081017
  Receipt Date: 20081017
  Transmission Date: 20090506
  Serious: Yes (Life-Threatening)
  Sender: FDA-Public Use
  Company Number: None

PATIENT
  Age: 71 Year
  Sex: Female
  Weight: 68.0396 kg

DRUGS (1)
  1. NAPROXEN [Suspect]
     Indication: MUSCLE STRAIN
     Dosage: 1 TABLET -375 MG- 2 TIMES A DAY PO
     Route: 048
     Dates: start: 20080727, end: 20080729

REACTIONS (1)
  - LARGE INTESTINE PERFORATION [None]
